FAERS Safety Report 12556544 (Version 1)
Quarter: 2016Q3

REPORT INFORMATION
  Report Type: Spontaneous
  Country: NL (occurrence: NL)
  Receive Date: 20160714
  Receipt Date: 20160714
  Transmission Date: 20161109
  Serious: Yes (Hospitalization)
  Sender: FDA-Public Use
  Company Number: NL-009507513-1607NLD005752

PATIENT
  Age: 49 Year
  Sex: Female
  Weight: 60 kg

DRUGS (7)
  1. DERMOVATE [Concomitant]
     Active Substance: CLOBETASOL
     Dosage: 2 TIMES A DAY 3 UNIT(S)
     Route: 003
     Dates: start: 20141202, end: 20160425
  2. HYDROCORTISONE. [Suspect]
     Active Substance: HYDROCORTISONE
     Indication: ECZEMA
     Dosage: UNK
     Route: 003
     Dates: start: 20141001
  3. PROTOPIC [Concomitant]
     Active Substance: TACROLIMUS
     Dosage: CREAM USED FOR THE FACE DURING 2 YEARS
     Route: 003
  4. TRIAMCINOLONE ACETONIDE. [Suspect]
     Active Substance: TRIAMCINOLONE ACETONIDE
     Indication: ECZEMA
     Dosage: UNK
     Route: 003
     Dates: start: 20141001
  5. ELOCON [Suspect]
     Active Substance: MOMETASONE FUROATE
     Dosage: UNK
     Route: 003
     Dates: start: 20141001
  6. EUMOVATE [Suspect]
     Active Substance: CLOBETASONE BUTYRATE
     Indication: ECZEMA
     Dosage: UNK
     Route: 003
     Dates: start: 20141001
  7. NEORAL [Concomitant]
     Active Substance: CYCLOSPORINE
     Dosage: START DATE NOT KNOWN; NEORAL TABLETS USED FOR 1 YEAR,
     Route: 003

REACTIONS (1)
  - Steroid withdrawal syndrome [Not Recovered/Not Resolved]

NARRATIVE: CASE EVENT DATE: 20141231
